FAERS Safety Report 17452489 (Version 1)
Quarter: 2020Q1

REPORT INFORMATION
  Report Type: Spontaneous
  Country: US (occurrence: US)
  Receive Date: 20200224
  Receipt Date: 20200224
  Transmission Date: 20200409
  Serious: Yes (Hospitalization)
  Sender: FDA-Public Use
  Company Number: US-SPECGX-T202000376

PATIENT
  Sex: Male

DRUGS (1)
  1. FENTANYL CITRATE. [Suspect]
     Active Substance: FENTANYL CITRATE
     Indication: PRODUCT USED FOR UNKNOWN INDICATION
     Dosage: UNK
     Route: 065

REACTIONS (6)
  - Overdose [Unknown]
  - Miosis [Unknown]
  - Intentional product use issue [Unknown]
  - Mental status changes [Unknown]
  - Toxicity to various agents [Unknown]
  - Respiratory depression [Unknown]

NARRATIVE: CASE EVENT DATE: 201901
